FAERS Safety Report 4865990-1 (Version None)
Quarter: 2005Q4

REPORT INFORMATION
  Report Type: 
  Country: None (occurrence: None)
  Receive Date: 20051226
  Receipt Date: 20051221
  Transmission Date: 20060501
  Serious: Yes (Hospitalization)
  Sender: FDA-Public Use
  Company Number: US-SANOFI-SYNTHELABO-A03200504370

PATIENT
  Age: 59 Year
  Sex: Female

DRUGS (9)
  1. OXALPLATIN [Suspect]
     Indication: ADENOCARCINOMA
     Route: 042
  2. FLUOROURACIL [Suspect]
     Indication: ADENOCARCINOMA
     Dosage: BOLUS OF 400 MG/M2 FOLLOWED BY 2400 MG/M2 CONTINUOUS INFUSION OVER 46 HOURS
     Route: 042
  3. LEUCOVORIN CALCIUM [Suspect]
     Indication: ADENOCARCINOMA
     Route: 042
  4. BEVACIZUMAB [Suspect]
     Indication: ADENOCARCINOMA
     Route: 042
  5. DEXAMETHASONE [Concomitant]
     Route: 042
  6. GRANISETRON [Concomitant]
     Route: 042
  7. MAGNESIUM [Concomitant]
     Route: 042
  8. CALCIUM GLUCONATE [Concomitant]
     Route: 042
  9. WARFARIN [Concomitant]
     Route: 048

REACTIONS (7)
  - ASPARTATE AMINOTRANSFERASE INCREASED [None]
  - BACK PAIN [None]
  - BLOOD ALKALINE PHOSPHATASE INCREASED [None]
  - BONE MARROW FAILURE [None]
  - COOMBS POSITIVE HAEMOLYTIC ANAEMIA [None]
  - NEUTROPENIA [None]
  - PROTHROMBIN TIME PROLONGED [None]
